FAERS Safety Report 20200356 (Version 10)
Quarter: 2022Q2

REPORT INFORMATION
  Report Type: Report from Study
  Country: DE (occurrence: None)
  Receive Date: 20211217
  Receipt Date: 20220415
  Transmission Date: 20220720
  Serious: Yes (Hospitalization)
  Sender: FDA-Public Use
  Company Number: DE-ROCHE-2978405

PATIENT
  Age: 58 Year
  Sex: Male
  Weight: 98 kg

DRUGS (27)
  1. OCRELIZUMAB [Suspect]
     Active Substance: OCRELIZUMAB
     Indication: Primary progressive multiple sclerosis
     Dosage: TWO INTRAVENOUS (IV) INFUSIONS OF OCRELIZUMAB SEPARATED BY 14 DAYS IN EACH TREATMENT CYCLE OF 24 WEE
     Route: 042
     Dates: start: 20120102
  2. OCRELIZUMAB [Suspect]
     Active Substance: OCRELIZUMAB
     Indication: Primary progressive multiple sclerosis
     Dosage: TWO INTRAVENOUS (IV) INFUSIONS OF OCRELIZUMAB SEPARATED BY 14 DAYS IN EACH TREATMENT CYCLE OF 24 WEE
     Route: 042
     Dates: start: 20160223
  3. OCRELIZUMAB [Suspect]
     Active Substance: OCRELIZUMAB
     Dosage: 520 ML SUBSEQUENT DOSES RECEIVED ON: 21/DEC/2017, 07/JUN/2018, 26/NOV/2018, 17/MAY/2019, 25/OCT/2019
     Route: 042
     Dates: start: 20170707
  4. DIMETHINDENE [Concomitant]
     Active Substance: DIMETHINDENE
     Dosage: SUBSEQUENT THERAPY RECEIVED ON : 23/FEB/2016, 26/NOV/2018, 17/MAY/2019, 25/OCT/2019
     Dates: start: 20150415
  5. DIMETHINDENE [Concomitant]
     Active Substance: DIMETHINDENE
     Dosage: SUBSEQUENT THERAPY RECEIVED ON: 18/JAN/2012, 20/JAN/2012, 04/JUL/2012, 29/NOV/2012, 13/DEC/2012, 13/
     Dates: start: 20120102
  6. METHYLPREDNISOLONE [Concomitant]
     Active Substance: METHYLPREDNISOLONE
     Dosage: SUBSEQUENT THERAPY RECEIVED ON: 18/JAN/2012, 20/JUN/2012 04/JUL/2012, 29/NOV/2012, 13/DEC/2012, 13/J
     Dates: start: 20120102
  7. ACETAMINOPHEN [Concomitant]
     Active Substance: ACETAMINOPHEN
     Dosage: SUBSEQUENT THERAPY RECEIVED ON: 18/JAN/2012, 20/JUN/2012 04/JUL/2012, 29/NOV/2012, 13/DEC/2012, 13/J
     Dates: start: 20120102
  8. ALFUZOSIN [Concomitant]
     Active Substance: ALFUZOSIN
     Dates: start: 20200915
  9. AMLODIPINE [Concomitant]
     Active Substance: AMLODIPINE BESYLATE
     Indication: Hypertension
     Dates: start: 202110
  10. BENZOCAINE [Concomitant]
     Active Substance: BENZOCAINE
     Indication: Viral infection
     Dates: start: 20180227, end: 20180305
  11. MIRABEGRON [Concomitant]
     Active Substance: MIRABEGRON
     Dates: start: 20201216
  12. CANDESARTAN [Concomitant]
     Active Substance: CANDESARTAN
     Indication: Hypertension
     Dates: start: 202006, end: 202011
  13. CANDESARTAN [Concomitant]
     Active Substance: CANDESARTAN
     Dates: start: 202011
  14. CHLORPHENIRAMINE MALEATE [Concomitant]
     Active Substance: CHLORPHENIRAMINE MALEATE
     Indication: Nasopharyngitis
     Dates: start: 20190923, end: 20190930
  15. CHLORPHENIRAMINE MALEATE [Concomitant]
     Active Substance: CHLORPHENIRAMINE MALEATE
     Indication: Viral infection
     Dates: start: 20180227, end: 20180305
  16. CAFFEINE [Concomitant]
     Active Substance: CAFFEINE
     Indication: Nasopharyngitis
     Dates: start: 20190923, end: 20190923
  17. CAFFEINE [Concomitant]
     Active Substance: CAFFEINE
     Indication: Viral infection
     Dates: start: 20180227, end: 20180305
  18. DOLOBENE [Concomitant]
     Indication: Arthralgia
     Dates: start: 20120807
  19. DARIFENACIN HYDROBROMIDE [Concomitant]
     Active Substance: DARIFENACIN HYDROBROMIDE
     Dates: start: 202006, end: 20200915
  20. HYLO VISION HD PLUS [Concomitant]
     Indication: Dry eye
     Dosage: 1 DROP
     Dates: start: 20151031
  21. METRONIDAZOLE [Concomitant]
     Active Substance: METRONIDAZOLE
     Dates: start: 20190708, end: 20190718
  22. OXYTETRACYCLIN PREDNISOLON [Concomitant]
     Indication: Prophylaxis
     Dates: start: 20211102, end: 20211122
  23. PANTOPRAZOLE [Concomitant]
     Active Substance: PANTOPRAZOLE
     Dates: start: 20171130
  24. PANTOPRAZOLE SODIUM [Concomitant]
     Active Substance: PANTOPRAZOLE SODIUM
     Dates: start: 20161012, end: 20161022
  25. POSIFORMIN [Concomitant]
     Dosage: 0.5 OTHER
     Dates: start: 20211122, end: 202112
  26. PFIZER-BIONTECH COVID-19 VACCINE [Concomitant]
     Active Substance: TOZINAMERAN
     Dates: start: 20210610, end: 20210610
  27. PFIZER-BIONTECH COVID-19 VACCINE [Concomitant]
     Active Substance: TOZINAMERAN
     Dates: start: 20210513, end: 20210513

REACTIONS (1)
  - COVID-19 pneumonia [Recovered/Resolved]

NARRATIVE: CASE EVENT DATE: 20211205
